FAERS Safety Report 18924215 (Version 1)
Quarter: 2021Q1

REPORT INFORMATION
  Report Type: Other
  Country: DE (occurrence: DE)
  Receive Date: 20210222
  Receipt Date: 20210222
  Transmission Date: 20210420
  Serious: No
  Sender: FDA-Public Use
  Company Number: DE-ROCHE-2233153

PATIENT
  Age: 46 Year
  Sex: Female
  Weight: 60 kg

DRUGS (6)
  1. OCRELIZUMAB. [Suspect]
     Active Substance: OCRELIZUMAB
     Indication: PRIMARY PROGRESSIVE MULTIPLE SCLEROSIS
     Dosage: MOST RECENT DOSE: 10/DEC/2018
     Route: 042
     Dates: start: 20181126
  2. IMMUNGLOBULIN [Concomitant]
     Active Substance: HUMAN IMMUNOGLOBULIN G
     Dates: start: 20090323, end: 20110601
  3. BIOTIN [Concomitant]
     Active Substance: BIOTIN
     Route: 048
     Dates: start: 20170616
  4. PROPICUM [Concomitant]
     Active Substance: SODIUM PROPIONATE
     Route: 048
     Dates: start: 20180319
  5. LYRICA [Concomitant]
     Active Substance: PREGABALIN
     Indication: PAIN IN EXTREMITY
     Route: 048
     Dates: start: 20171106
  6. OCRELIZUMAB. [Suspect]
     Active Substance: OCRELIZUMAB
     Dosage: MOST RECENT DOSE: 02/DEC/2019
     Route: 042
     Dates: start: 20190603

REACTIONS (2)
  - Rash [Recovered/Resolved]
  - Herpes zoster [Unknown]

NARRATIVE: CASE EVENT DATE: 20181214
